FAERS Safety Report 6333423-4 (Version None)
Quarter: 2009Q3

REPORT INFORMATION
  Report Type: 
  Country: None (occurrence: None)
  Receive Date: 20090828
  Receipt Date: 20090817
  Transmission Date: 20100115
  Serious: Yes (Death)
  Sender: FDA-Public Use
  Company Number: US-ELI_LILLY_AND_COMPANY-US200906000791

PATIENT
  Age: 87 Year
  Sex: Female

DRUGS (2)
  1. SYMBYAX [Suspect]
     Indication: ANXIETY
     Dosage: 1 D/F, UNK
  2. PROZAC [Suspect]

REACTIONS (2)
  - DEATH [None]
  - OFF LABEL USE [None]
